FAERS Safety Report 17201785 (Version 2)
Quarter: 2020Q1

REPORT INFORMATION
  Report Type: Report from Study
  Country: AR (occurrence: AR)
  Receive Date: 20191226
  Receipt Date: 20200317
  Transmission Date: 20200409
  Serious: Yes (Death, Other)
  Sender: FDA-Public Use
  Company Number: AR-BAYER-2019-214975

PATIENT
  Age: 85 Year
  Sex: Male

DRUGS (3)
  1. XOFIGO [Suspect]
     Active Substance: RADIUM RA-223 DICHLORIDE
     Indication: PROSTATE CANCER
     Dosage: UNK
     Dates: start: 20191101, end: 20191101
  2. XOFIGO [Suspect]
     Active Substance: RADIUM RA-223 DICHLORIDE
     Indication: PROSTATE CANCER
     Dosage: UNK
     Dates: start: 20200113, end: 20200113
  3. IRON [Concomitant]
     Active Substance: IRON

REACTIONS (5)
  - Asthenia [None]
  - Bone marrow failure [Fatal]
  - Platelet count decreased [Not Recovered/Not Resolved]
  - Metastases to bone marrow [Fatal]
  - Haematocrit decreased [Not Recovered/Not Resolved]

NARRATIVE: CASE EVENT DATE: 20191113
